FAERS Safety Report 8460788 (Version 4)
Quarter: 2013Q2

REPORT INFORMATION
  Report Type: Spontaneous
  Country: IE (occurrence: None)
  Receive Date: 20120223
  Receipt Date: 20130412
  Transmission Date: 20140414
  Serious: Yes (Other)
  Sender: FDA-Public Use
  Company Number: 2012031211

PATIENT
  Age: 20 Year
  Sex: Female

DRUGS (5)
  1. RHOPHYLAC [Suspect]
     Indication: KLEIHAUER-BETKE TEST
     Dosage: 4500MCG IN 100 ML OVER 30 MINS
     Route: 042
     Dates: start: 20120130, end: 20120130
  2. HYDROCORTONE [Concomitant]
  3. CHLORPHENIRAMINE MALEATE [Concomitant]
  4. MEFENAMIC ACID [Concomitant]
  5. ACETAMINOPHEN [Concomitant]

REACTIONS (6)
  - BODY TEMPERATURE INCREASED [None]
  - FEELING COLD [None]
  - MALAISE [None]
  - CHILLS [None]
  - SOMNOLENCE [None]
  - MEDICATION ERROR [None]
